FAERS Safety Report 16884708 (Version 10)
Quarter: 2022Q1

REPORT INFORMATION
  Report Type: Report from Study
  Country: GB (occurrence: None)
  Receive Date: 20191004
  Receipt Date: 20220210
  Transmission Date: 20220423
  Serious: Yes (Hospitalization)
  Sender: FDA-Public Use
  Company Number: GB-ROCHE-2425472

PATIENT
  Age: 56 Year
  Sex: Male
  Weight: 114 kg

DRUGS (37)
  1. GLOFITAMAB [Suspect]
     Active Substance: GLOFITAMAB
     Indication: Non-Hodgkin^s lymphoma
     Dosage: ON 11/SEP/2019 AT 14:45, MOST RECENT DOSE OF RO7082859 4 MG PRIOR TO AE ONSET WAS ADMINISTERED.?ON 1
     Route: 042
     Dates: start: 20190306
  2. OBINUTUZUMAB [Suspect]
     Active Substance: OBINUTUZUMAB
     Indication: Non-Hodgkin^s lymphoma
     Dosage: ON 10/JUL/2019 AT 12:15 PM, MOST RECENT DOSE OF OBINUTUZUMAB 1000 MG PRIOR TO AE ONSET WAS ADMINISTE
     Route: 042
     Dates: start: 20190227
  3. ATEZOLIZUMAB [Suspect]
     Active Substance: ATEZOLIZUMAB
     Indication: Non-Hodgkin^s lymphoma
     Dosage: ON 11/SEP/2019 AT 12:35, MOST RECENT DOSE OF ATEZOLIZUMAB 1200 MG PRIOR TO AE ONSET WAS ADMINISTERED
     Route: 042
     Dates: start: 20190327
  4. ACETAMINOPHEN [Concomitant]
     Active Substance: ACETAMINOPHEN
     Indication: Pain
     Dates: start: 2016
  5. ACETAMINOPHEN [Concomitant]
     Active Substance: ACETAMINOPHEN
     Indication: Cytokine release syndrome
     Dates: start: 20190306
  6. ACETAMINOPHEN [Concomitant]
     Active Substance: ACETAMINOPHEN
     Indication: Abdominal pain
     Dates: start: 20190523
  7. ACETAMINOPHEN [Concomitant]
     Active Substance: ACETAMINOPHEN
     Route: 048
     Dates: start: 20190911, end: 20190911
  8. MORPHINE SULFATE [Concomitant]
     Active Substance: MORPHINE SULFATE
     Indication: Back pain
     Dates: start: 20170124
  9. BISOPROLOL [Concomitant]
     Active Substance: BISOPROLOL
     Indication: Hypertension
     Dates: start: 20150511
  10. LOSARTAN [Concomitant]
     Active Substance: LOSARTAN
     Indication: Hypertension
     Dates: start: 20170405
  11. VENLAFAXINE [Concomitant]
     Active Substance: VENLAFAXINE HYDROCHLORIDE
     Indication: Depression
     Dates: start: 20151013
  12. GABAPENTIN [Concomitant]
     Active Substance: GABAPENTIN
     Indication: Pain
     Dates: start: 20170207
  13. GABAPENTIN [Concomitant]
     Active Substance: GABAPENTIN
     Dates: start: 20190820
  14. EUMOVATE [Concomitant]
     Active Substance: CLOBETASONE BUTYRATE
     Indication: Rash
     Dates: start: 20180615
  15. VENTOLIN [Concomitant]
     Active Substance: ALBUTEROL SULFATE
     Indication: Wheezing
     Dates: start: 20170214
  16. ALLOPURINOL [Concomitant]
     Active Substance: ALLOPURINOL
     Indication: Prophylaxis
     Dates: start: 20190227, end: 20190411
  17. METHYLPREDNISOLONE [Concomitant]
     Active Substance: METHYLPREDNISOLONE
     Dates: start: 20190227, end: 20190227
  18. METHYLPREDNISOLONE [Concomitant]
     Active Substance: METHYLPREDNISOLONE
     Route: 042
     Dates: start: 20190911, end: 20190911
  19. CHLORPHENIRAMINE MALEATE [Concomitant]
     Active Substance: CHLORPHENIRAMINE MALEATE
     Dates: start: 20190227, end: 20190227
  20. CHLORPHENIRAMINE MALEATE [Concomitant]
     Active Substance: CHLORPHENIRAMINE MALEATE
     Route: 042
     Dates: start: 20190911, end: 20190911
  21. CEFTAZIDIME [Concomitant]
     Active Substance: CEFTAZIDIME
     Dates: start: 20190307, end: 20190308
  22. LANSOPRAZOLE [Concomitant]
     Active Substance: LANSOPRAZOLE
     Indication: Gastrooesophageal reflux disease
     Dates: start: 20160708
  23. LEMSIP (UNITED KINGDOM) [Concomitant]
     Indication: Nasopharyngitis
     Dates: start: 20190221, end: 20190221
  24. ENOXAPARIN BIOSIMILAR [Concomitant]
     Indication: Prophylaxis
     Dates: start: 20190227
  25. ENOXAPARIN BIOSIMILAR [Concomitant]
     Indication: Embolism venous
  26. AMOXICILLIN [Concomitant]
     Active Substance: AMOXICILLIN
     Indication: Prophylaxis
     Dates: start: 20190227, end: 20190303
  27. DIAZEPAM [Concomitant]
     Active Substance: DIAZEPAM
     Indication: Pain
     Dates: start: 20161028
  28. CYANOCOBALAMIN [Concomitant]
     Active Substance: CYANOCOBALAMIN
     Indication: Vitamin B12 decreased
     Dates: start: 20190508
  29. FOLIC ACID [Concomitant]
     Active Substance: FOLIC ACID
     Indication: Blood folate decreased
     Dates: start: 20190508
  30. CHOLECALCIFEROL [Concomitant]
     Active Substance: CHOLECALCIFEROL
     Indication: Vitamin D decreased
     Dates: start: 20190508
  31. BENZYDAMINE [Concomitant]
     Active Substance: BENZYDAMINE
     Indication: Mucosal inflammation
     Dates: start: 20190516
  32. PEPTAC (UNITED KINGDOM) [Concomitant]
     Indication: Dyspepsia
     Dates: start: 20190625, end: 20190909
  33. FILGRASTIM [Concomitant]
     Active Substance: FILGRASTIM
     Indication: Neutropenia
     Dates: start: 20190828, end: 20190829
  34. FILGRASTIM [Concomitant]
     Active Substance: FILGRASTIM
     Dates: start: 20190903, end: 20190903
  35. ACYCLOVIR [Concomitant]
     Active Substance: ACYCLOVIR
     Indication: Herpes zoster
     Dates: start: 20190820, end: 20190827
  36. IBUPROFEN [Concomitant]
     Active Substance: IBUPROFEN
     Indication: Arthralgia
     Dates: start: 20190916, end: 20190921
  37. OXYGEN [Concomitant]
     Active Substance: OXYGEN
     Indication: Hypoxia

REACTIONS (1)
  - Sinus tachycardia [Recovered/Resolved]

NARRATIVE: CASE EVENT DATE: 20190925
